FAERS Safety Report 6930324-5 (Version None)
Quarter: 2010Q3

REPORT INFORMATION
  Report Type: 
  Country: None (occurrence: None)
  Receive Date: 20100818
  Receipt Date: 20100811
  Transmission Date: 20110219
  Serious: No
  Sender: FDA-Public Use
  Company Number: BR-ROCHE-662888

PATIENT
  Sex: Female

DRUGS (3)
  1. ROACUTAN [Suspect]
     Indication: ACNE
     Dosage: STOP DATE: 2008, STRENGTH: 10-20 MG
     Route: 048
     Dates: start: 20081101
  2. ROACUTAN [Suspect]
     Route: 048
     Dates: start: 20090121, end: 20091007
  3. SELENE [Concomitant]
     Indication: CONTRACEPTION
     Dosage: FREQUENCY: DAILY
     Route: 048

REACTIONS (2)
  - NO ADVERSE EVENT [None]
  - PREGNANCY [None]
